FAERS Safety Report 25670005 (Version 1)
Quarter: 2025Q3

REPORT INFORMATION
  Report Type: Spontaneous
  Country: US (occurrence: None)
  Receive Date: 20250811
  Receipt Date: 20250811
  Transmission Date: 20251020
  Serious: Yes (Death, Hospitalization)
  Sender: FDA-CTU
  Company Number: None

PATIENT
  Age: 44 Year
  Sex: Male
  Weight: 81 kg

DRUGS (1)
  1. ANASTROZOLE\TESTOSTERONE [Suspect]
     Active Substance: ANASTROZOLE\TESTOSTERONE
     Indication: Blood testosterone decreased
     Route: 030
     Dates: start: 20210401, end: 20250720

REACTIONS (3)
  - Cardiac arrest [None]
  - Thrombosis [None]
  - Myocardial infarction [None]

NARRATIVE: CASE EVENT DATE: 20250722
